FAERS Safety Report 9871450 (Version 1)
Quarter: 2014Q1

REPORT INFORMATION
  Report Type: Spontaneous
  Country: US (occurrence: None)
  Receive Date: 20140204
  Receipt Date: 20140204
  Transmission Date: 20141002
  Serious: Yes (Life-Threatening, Hospitalization)
  Sender: FDA-Public Use
  Company Number: None

PATIENT
  Age: 84 Year
  Sex: Male
  Weight: 58.97 kg

DRUGS (14)
  1. PLAVIX [Suspect]
     Indication: PROPHYLAXIS
     Route: 048
  2. PLAVIX [Suspect]
     Indication: ATRIAL FIBRILLATION
     Route: 048
  3. PLAVIX [Suspect]
     Indication: CEREBROVASCULAR ACCIDENT
     Route: 048
  4. PLAVIX [Suspect]
     Indication: TRANSIENT ISCHAEMIC ATTACK
     Route: 048
  5. HEPARIN [Suspect]
     Indication: PROPHYLAXIS
     Route: 058
     Dates: start: 20140119, end: 20140124
  6. HEPARIN [Suspect]
     Indication: HOSPITALISATION
     Route: 058
     Dates: start: 20140119, end: 20140124
  7. MULTAQ [Concomitant]
  8. PLAVIX [Concomitant]
  9. LIVALO [Concomitant]
  10. METOPROLOL XL [Concomitant]
  11. AMLODIPINE [Concomitant]
  12. LEVOTHYROXINE [Concomitant]
  13. RENVELA [Concomitant]
  14. CALCITRIOL [Concomitant]

REACTIONS (4)
  - Liver abscess [None]
  - Abdominal wall haematoma [None]
  - Spontaneous haematoma [None]
  - Post procedural complication [None]
